FAERS Safety Report 9679329 (Version 1)
Quarter: 2013Q4

REPORT INFORMATION
  Report Type: Spontaneous
  Country: US (occurrence: US)
  Receive Date: 20131109
  Receipt Date: 20131109
  Transmission Date: 20140711
  Serious: No
  Sender: FDA-Public Use
  Company Number: US-SANOFI-AVENTIS-2013SA001960

PATIENT
  Age: 28 Year
  Sex: Female

DRUGS (2)
  1. ALLEGRA-D [Suspect]
     Dosage: FEXOFENADINE HCL 180MG AND PSEUDOEPHEDRINE HCL 240
     Route: 048
  2. ALLEGRA-D [Suspect]

REACTIONS (4)
  - Medication residue present [Unknown]
  - Nasal discomfort [Unknown]
  - Rhinorrhoea [Unknown]
  - Drug ineffective [Not Recovered/Not Resolved]
